FAERS Safety Report 17340043 (Version 2)
Quarter: 2020Q1

REPORT INFORMATION
  Report Type: Spontaneous
  Country: US (occurrence: US)
  Receive Date: 20200129
  Receipt Date: 20200203
  Transmission Date: 20200409
  Serious: No
  Sender: FDA-Public Use
  Company Number: US-TORRENT-00009647

PATIENT
  Age: 80 Year
  Sex: Male
  Weight: 52 kg

DRUGS (5)
  1. METHIMAZOLE. [Suspect]
     Active Substance: METHIMAZOLE
     Indication: THYROID DISORDER
     Dosage: UNKNOWN
  2. ATORVASTATIN [Suspect]
     Active Substance: ATORVASTATIN
     Indication: BLOOD CHOLESTEROL INCREASED
  3. LOSARTAN. [Suspect]
     Active Substance: LOSARTAN
     Indication: HYPERTENSION
     Dosage: ONCE A DAY
     Route: 048
     Dates: start: 2018, end: 2018
  4. LOSARTAN. [Suspect]
     Active Substance: LOSARTAN
     Indication: HYPERTENSION
     Dates: start: 2018
  5. LOSARTAN. [Concomitant]
     Active Substance: LOSARTAN
     Indication: HYPERTENSION
     Dosage: YEARS AGO LIKE 4-5 YEARS AGO

REACTIONS (4)
  - Headache [Unknown]
  - Wrong technique in product usage process [Unknown]
  - Diarrhoea [Unknown]
  - Epigastric discomfort [Unknown]

NARRATIVE: CASE EVENT DATE: 2018
